FAERS Safety Report 5548377-8 (Version None)
Quarter: 2007Q4

REPORT INFORMATION
  Report Type: 
  Country: None (occurrence: None)
  Receive Date: 20071207
  Receipt Date: 20071128
  Transmission Date: 20080405
  Serious: Yes (Other)
  Sender: FDA-Public Use
  Company Number: URSO-2007-212

PATIENT
  Age: 89 Year
  Sex: Female

DRUGS (1)
  1. URSO (URSODEOXYCHOLIC ACID) 100 MG TABLETS [Suspect]
     Indication: CHOLELITHIASIS
     Dosage: 600 MG QD; ORAL
     Route: 048
     Dates: start: 20071108, end: 20071109

REACTIONS (4)
  - GLOSSODYNIA [None]
  - PHARYNGEAL OEDEMA [None]
  - PYREXIA [None]
  - TONGUE OEDEMA [None]
